FAERS Safety Report 19818939 (Version 1)
Quarter: 2021Q3

REPORT INFORMATION
  Report Type: Spontaneous
  Country: CN (occurrence: CN)
  Receive Date: 20210912
  Receipt Date: 20210912
  Transmission Date: 20211014
  Serious: Yes (Other)
  Sender: FDA-Public Use
  Company Number: CN-BAXTER-2021BAX028183

PATIENT
  Age: 46 Year
  Sex: Male
  Weight: 78 kg

DRUGS (5)
  1. BETAMETHASONE SODIUM PHOSPHATE [Suspect]
     Active Substance: BETAMETHASONE SODIUM PHOSPHATE
     Indication: INTERVERTEBRAL DISC PROTRUSION
     Dosage: 0.9% SODIUM CHLORIDE 100 ML + BETAMETHASONE SODIUM PHOSPHATE FOR INJECTION 10 MG
     Route: 041
     Dates: start: 20210824, end: 20210824
  2. 20% MANNITOL INJECTION [Suspect]
     Active Substance: MANNITOL
     Indication: INTERVERTEBRAL DISC PROTRUSION
     Route: 041
     Dates: start: 20210824, end: 20210824
  3. SODIUM CHLORIDE. [Suspect]
     Active Substance: SODIUM CHLORIDE
     Indication: MEDICATION DILUTION
     Dosage: 0.9% SODIUM CHLORIDE 100 ML + BETAMETHASONE SODIUM PHOSPHATE FOR INJECTION 10 MG
     Route: 041
     Dates: start: 20210824, end: 20210824
  4. SODIUM CHLORIDE. [Suspect]
     Active Substance: SODIUM CHLORIDE
     Indication: MEDICATION DILUTION
     Dosage: 0.9% SODIUM CHLORIDE 10 ML + KETOROLAC TROMETHAMINE NEEDLE 15 MG
     Route: 042
     Dates: start: 20210824, end: 20210824
  5. KETOROLAC TROMETHAMINE. [Suspect]
     Active Substance: KETOROLAC TROMETHAMINE
     Indication: NEURALGIA
     Dosage: 0.9% SODIUM CHLORIDE 10 ML + KETOROLAC TROMETHAMINE NEEDLE 15 MG
     Route: 042
     Dates: start: 20210824, end: 20210824

REACTIONS (2)
  - Pruritus [Recovering/Resolving]
  - Erythema [Recovering/Resolving]

NARRATIVE: CASE EVENT DATE: 20210824
